FAERS Safety Report 6176662-8 (Version None)
Quarter: 2009Q2

REPORT INFORMATION
  Report Type: 
  Country: None (occurrence: None)
  Receive Date: 20090501
  Receipt Date: 20081110
  Transmission Date: 20091009
  Serious: Yes (Hospitalization, Other)
  Sender: FDA-Public Use
  Company Number: US-ALEXION-A200800340

PATIENT

DRUGS (1)
  1. SOLIRIS [Suspect]
     Dosage: 900 MG, SINGLE
     Route: 042
     Dates: start: 20081022, end: 20081022

REACTIONS (4)
  - CATHETER SITE INFECTION [None]
  - DRUG INEFFECTIVE [None]
  - HAEMOLYSIS [None]
  - WOUND DEHISCENCE [None]
